FAERS Safety Report 16474959 (Version 1)
Quarter: 2019Q2

REPORT INFORMATION
  Report Type: Report from Study
  Country: ES (occurrence: ES)
  Receive Date: 20190625
  Receipt Date: 20190625
  Transmission Date: 20190711
  Serious: Yes (Hospitalization)
  Sender: FDA-Public Use
  Company Number: ES-TEVA-2019-ES-1068114

PATIENT
  Age: 61 Year
  Sex: Male

DRUGS (3)
  1. AZITROMICINA (7019A) [Suspect]
     Active Substance: AZITHROMYCIN
     Indication: PNEUMONIA
     Dosage: 500 MG DAY
     Route: 065
     Dates: start: 20190216, end: 20190221
  2. CISATRACURIO (2738A) [Suspect]
     Active Substance: CISATRACURIUM BESYLATE
     Dosage: 120 MMG EVERY 6 HOURS
     Route: 042
     Dates: start: 20190217, end: 20190221
  3. CEFTRIAXONA (501A) [Suspect]
     Active Substance: CEFTRIAXONE
     Indication: PNEUMONIA
     Dosage: 2 GR DAY
     Route: 042
     Dates: start: 20190216, end: 20190221

REACTIONS (1)
  - Hepatitis acute [Recovered/Resolved]

NARRATIVE: CASE EVENT DATE: 20190220
